FAERS Safety Report 10676875 (Version 2)
Quarter: 2015Q1

REPORT INFORMATION
  Report Type: Spontaneous
  Country: IT (occurrence: IT)
  Receive Date: 20141226
  Receipt Date: 20150108
  Transmission Date: 20150720
  Serious: Yes (Hospitalization, Other)
  Sender: FDA-Public Use
  Company Number: IT-PFIZER INC-2014356974

PATIENT
  Age: 56 Year
  Sex: Female

DRUGS (3)
  1. MINIAS [Suspect]
     Active Substance: LORMETAZEPAM
     Indication: SUICIDE ATTEMPT
     Dosage: 15 ML, SINGLE
     Route: 048
     Dates: start: 20141203, end: 20141203
  2. XANAX [Suspect]
     Active Substance: ALPRAZOLAM
     Indication: SUICIDE ATTEMPT
     Dosage: 15 ML, SINGLE
     Route: 048
     Dates: start: 20141203, end: 20141203
  3. SERTRALINE [Concomitant]
     Active Substance: SERTRALINE HYDROCHLORIDE
     Dosage: UNK

REACTIONS (3)
  - Hypokinesia [Recovered/Resolved]
  - Suicide attempt [Unknown]
  - Drug abuse [Recovered/Resolved]

NARRATIVE: CASE EVENT DATE: 20141203
